FAERS Safety Report 5893839-7 (Version None)
Quarter: 2008Q3

REPORT INFORMATION
  Report Type: 
  Country: None (occurrence: None)
  Receive Date: 20080923
  Receipt Date: 20071031
  Transmission Date: 20090109
  Serious: No
  Sender: FDA-Public Use
  Company Number: US-ASTRAZENECA-2007UW25319

PATIENT
  Age: 58 Year
  Sex: Male
  Weight: 83 kg

DRUGS (3)
  1. SEROQUEL [Suspect]
     Indication: DEPRESSION
     Route: 048
  2. MOTRIN [Concomitant]
  3. VICODIN [Concomitant]

REACTIONS (3)
  - CYSTITIS [None]
  - GROIN PAIN [None]
  - PAIN IN EXTREMITY [None]
